FAERS Safety Report 7956479-1 (Version None)
Quarter: 2011Q4

REPORT INFORMATION
  Report Type: 
  Country: None (occurrence: None)
  Receive Date: 20111205
  Receipt Date: 20111125
  Transmission Date: 20120403
  Serious: Yes (Hospitalization)
  Sender: FDA-Public Use
  Company Number: US-BAYER-2011-014062

PATIENT
  Age: 30 Year
  Sex: Female
  Weight: 79.365 kg

DRUGS (6)
  1. DROSPIRENONE AND ETHINYL ESTRADIOL [Suspect]
     Indication: MENSTRUAL CYCLE MANAGEMENT
     Dosage: UNK
     Dates: start: 20090501, end: 20091001
  2. NEXIUM [Concomitant]
     Dosage: 40 MG, DAILY
     Route: 048
     Dates: start: 20081114
  3. YAZ [Suspect]
     Indication: MENSTRUAL CYCLE MANAGEMENT
     Dosage: UNK
     Dates: start: 20080901, end: 20090401
  4. LEVOTHYROXINE SODIUM [Concomitant]
     Indication: HYPOTHYROIDISM
     Dosage: 25 MCG/24HR, UNK
     Route: 048
     Dates: start: 20080901
  5. RETIN-A [Concomitant]
     Dosage: 0.05% CREAM, PRN
     Route: 061
     Dates: start: 20081212
  6. FLAGYL [Concomitant]
     Dosage: 500 MG, TID
     Route: 048
     Dates: start: 20081114

REACTIONS (7)
  - PAIN [None]
  - CHOLECYSTITIS CHRONIC [None]
  - INJURY [None]
  - ABDOMINAL PAIN [None]
  - CHOLELITHIASIS [None]
  - PANCREATITIS [None]
  - ANXIETY [None]
